FAERS Safety Report 9549482 (Version 1)
Quarter: 2013Q3

REPORT INFORMATION
  Report Type: Spontaneous
  Country: US (occurrence: US)
  Receive Date: 20130924
  Receipt Date: 20130924
  Transmission Date: 20140515
  Serious: Yes (Other)
  Sender: FDA-Public Use
  Company Number: CHPA2013US014429

PATIENT
  Age: 48 Year
  Sex: Female

DRUGS (4)
  1. PRIVATE LABEL [Suspect]
     Indication: SMOKING CESSATION THERAPY
     Dosage: 21 MG, UNK
     Route: 062
     Dates: start: 20130915, end: 20130917
  2. PRIVATE LABEL [Suspect]
     Dosage: 21 MG, UNK
     Route: 062
     Dates: start: 201210, end: 201210
  3. ALBUTEROL [Concomitant]
     Indication: ASTHMA
     Dosage: UNK, PRN
  4. ASTHMADEX [Concomitant]
     Indication: ASTHMA
     Dosage: UNK

REACTIONS (10)
  - Asthma [Recovered/Resolved]
  - Blood pressure increased [Recovered/Resolved]
  - Confusional state [Recovered/Resolved]
  - Pallor [Recovered/Resolved]
  - Malaise [Recovered/Resolved]
  - Abdominal discomfort [Recovered/Resolved]
  - Nausea [Recovered/Resolved]
  - Dizziness [Recovered/Resolved]
  - Overdose [Unknown]
  - Treatment noncompliance [Unknown]
